FAERS Safety Report 18795465 (Version 1)
Quarter: 2021Q1

REPORT INFORMATION
  Report Type: Spontaneous
  Country: US (occurrence: US)
  Receive Date: 20210127
  Receipt Date: 20210127
  Transmission Date: 20210419
  Serious: No
  Sender: FDA-Public Use
  Company Number: US-BAYER-2021-034343

PATIENT
  Age: 73 Year
  Sex: Male

DRUGS (1)
  1. ALEVE [Suspect]
     Active Substance: NAPROXEN SODIUM
     Indication: PAIN
     Dosage: 2 DF,EVERY 6 HOURS
     Route: 048

REACTIONS (4)
  - Extra dose administered [Unknown]
  - Drug ineffective [None]
  - Expired product administered [Unknown]
  - Product use issue [Unknown]
